FAERS Safety Report 23266530 (Version 11)
Quarter: 2025Q3

REPORT INFORMATION
  Report Type: Report from Study
  Country: EG (occurrence: EG)
  Receive Date: 20231206
  Receipt Date: 20250908
  Transmission Date: 20251020
  Serious: Yes (Other)
  Sender: NOVARTIS
  Company Number: EG-002147023-NVSC2022EG125865

PATIENT
  Age: 70 Year
  Sex: Female
  Weight: 72 kg

DRUGS (16)
  1. KISQALI [Suspect]
     Active Substance: RIBOCICLIB SUCCINATE
     Indication: Breast cancer metastatic
     Dosage: 3 DOSAGE FORM, QD (EACH TABLET IS TAKEN EVERY 30-60MINS), (FOR 21 DAYS AND 1 WEEK OFF UPON HER WORDS
     Route: 065
     Dates: start: 202109
  2. KISQALI [Suspect]
     Active Substance: RIBOCICLIB SUCCINATE
     Indication: Metastases to bone
     Dosage: 200 MG, QD (3 WEEKS THEN ONE WEEK OFF)
     Route: 048
     Dates: start: 20220101
  3. KISQALI [Suspect]
     Active Substance: RIBOCICLIB SUCCINATE
     Indication: Breast cancer
     Dosage: 3 DOSAGE FORM, QD (EACH TABLET IS TAKEN EVERY 15 MINS) FOR 21 DAYS AND 1 WEEK OFF UPON HER WORDS)
     Route: 065
     Dates: start: 202209
  4. KISQALI [Suspect]
     Active Substance: RIBOCICLIB SUCCINATE
     Route: 048
  5. KISQALI [Suspect]
     Active Substance: RIBOCICLIB SUCCINATE
     Route: 048
  6. KISQALI [Suspect]
     Active Substance: RIBOCICLIB SUCCINATE
     Dosage: 3 DOSAGE FORM, QD (DAILY FOR 3 WEEKS AND ONE WEEK OFF)
     Route: 048
  7. LORATADINE [Concomitant]
     Active Substance: LORATADINE
     Indication: Rash
     Dosage: 1 DOSAGE FORM, QD (ONLY WHEN  THE RASH APPEARS (AS MENTIONED IN EVENT 1)
     Route: 048
     Dates: start: 20230801
  8. LORATADINE [Concomitant]
     Active Substance: LORATADINE
     Indication: Pruritus
     Route: 048
  9. XGEVA [Concomitant]
     Active Substance: DENOSUMAB
     Indication: Breast cancer metastatic
     Dosage: 1 DOSAGE FORM, QMO, (INJECTION)
     Route: 065
     Dates: start: 202109
  10. XGEVA [Concomitant]
     Active Substance: DENOSUMAB
     Indication: Metastases to bone
     Dosage: 1 DOSAGE FORM, QMO
     Route: 058
     Dates: start: 2022
  11. XGEVA [Concomitant]
     Active Substance: DENOSUMAB
     Indication: Supplementation therapy
     Dosage: UNK, QD
     Route: 048
  12. VITAMIN C [Concomitant]
     Active Substance: ASCORBIC ACID
     Indication: Supplementation therapy
     Dosage: 1 DOSAGE FORM, QD (1000)
     Route: 065
  13. Antodine [Concomitant]
     Indication: Gastrooesophageal reflux disease
     Dosage: 20 MG, QD TWO TABLETS WITHOUT FOOD OR ONE TABLET WITH FOOD (3 YEARS AGO)
     Route: 048
     Dates: start: 202209
  14. Antodine [Concomitant]
     Indication: Abdominal discomfort
  15. Clamide [Concomitant]
     Indication: Supplementation therapy
     Dosage: 2 DOSAGE FORM, QD (1000), TABLET
     Route: 065
     Dates: start: 2023
  16. ARIMIDEX [Concomitant]
     Active Substance: ANASTROZOLE
     Indication: Prophylaxis
     Dosage: 1 DOSAGE FORM, QD, (TABLET)
     Route: 065
     Dates: start: 202209

REACTIONS (23)
  - Tachycardia [Not Recovered/Not Resolved]
  - Fatigue [Not Recovered/Not Resolved]
  - Cardiovascular insufficiency [Not Recovered/Not Resolved]
  - Hypotension [Not Recovered/Not Resolved]
  - Acne [Recovered/Resolved]
  - Alopecia [Not Recovered/Not Resolved]
  - Rash pruritic [Not Recovered/Not Resolved]
  - Hypersensitivity [Not Recovered/Not Resolved]
  - Nausea [Recovered/Resolved]
  - Abdominal pain upper [Not Recovered/Not Resolved]
  - Toothache [Not Recovered/Not Resolved]
  - Trigeminal neuralgia [Recovered/Resolved]
  - Haemoglobin decreased [Not Recovered/Not Resolved]
  - Vomiting [Recovered/Resolved]
  - Rash [Recovered/Resolved]
  - Off label use [Unknown]
  - Pigmentation disorder [Not Recovered/Not Resolved]
  - Skin discolouration [Not Recovered/Not Resolved]
  - Nasopharyngitis [Recovered/Resolved]
  - Anaemia [Unknown]
  - Nasopharyngitis [Recovering/Resolving]
  - Blood calcium decreased [Unknown]
  - Vitamin D decreased [Unknown]

NARRATIVE: CASE EVENT DATE: 20210901
